FAERS Safety Report 11901339 (Version 1)
Quarter: 2016Q1

REPORT INFORMATION
  Report Type: Report from Study
  Country: US (occurrence: US)
  Receive Date: 20160108
  Receipt Date: 20160108
  Transmission Date: 20160526
  Serious: No
  Sender: FDA-Public Use
  Company Number: US-ABBVIE-15P-163-1451431-00

PATIENT
  Sex: Male

DRUGS (1)
  1. VIEKIRA PAK [Suspect]
     Active Substance: DASABUVIR\OMBITASVIR\PARITAPREVIR\RITONAVIR
     Indication: HEPATITIS C
     Dosage: WEEKLY PACK 28^S
     Route: 048
     Dates: start: 201505

REACTIONS (5)
  - Gait disturbance [Unknown]
  - Chondrocalcinosis pyrophosphate [Unknown]
  - Inflammation [Unknown]
  - Swelling [Unknown]
  - Pain [Unknown]
